FAERS Safety Report 9091416 (Version 1)
Quarter: 2013Q1

REPORT INFORMATION
  Report Type: Spontaneous
  Country: US (occurrence: US)
  Receive Date: 20130130
  Receipt Date: 20130130
  Transmission Date: 20140127
  Serious: No
  Sender: FDA-Public Use
  Company Number: US-009507513-1301USA012946

PATIENT
  Age: 84 Year
  Sex: Female

DRUGS (3)
  1. DULERA [Suspect]
     Dosage: UNK
     Dates: start: 20130101
  2. ACLIDINIUM BROMIDE [Suspect]
     Indication: EMPHYSEMA
     Dosage: 400 MICROGRAM, BID
     Route: 055
     Dates: start: 20130117, end: 20130119
  3. OXYGEN [Concomitant]
     Dosage: UNK

REACTIONS (1)
  - Muscle spasms [Recovered/Resolved]
